FAERS Safety Report 11190793 (Version 2)
Quarter: 2015Q2

REPORT INFORMATION
  Report Type: Spontaneous
  Country: US (occurrence: US)
  Receive Date: 20150615
  Receipt Date: 20150625
  Transmission Date: 20150821
  Serious: Yes (Other)
  Sender: FDA-Public Use
  Company Number: US-GLAXOSMITHKLINE-US2015GSK082712

PATIENT
  Sex: Female

DRUGS (3)
  1. VENTOLIN HFA [Suspect]
     Active Substance: ALBUTEROL SULFATE
     Indication: ASTHMA
  2. MELOXICAM. [Concomitant]
     Active Substance: MELOXICAM
  3. VENTOLIN HFA [Suspect]
     Active Substance: ALBUTEROL SULFATE
     Indication: BRONCHITIS
     Dosage: UNK, U
     Route: 055
     Dates: start: 1998

REACTIONS (3)
  - Expired product administered [Unknown]
  - Cholecystectomy [Unknown]
  - Drug administration error [Unknown]

NARRATIVE: CASE EVENT DATE: 2000
